FAERS Safety Report 8257155-0 (Version None)
Quarter: 2012Q2

REPORT INFORMATION
  Report Type: 
  Country: None (occurrence: None)
  Receive Date: 20120403
  Receipt Date: 20120327
  Transmission Date: 20120825
  Serious: Yes (Hospitalization, Other)
  Sender: FDA-Public Use
  Company Number: US-ABBOTT-12P-163-0920037-00

PATIENT
  Sex: Female
  Weight: 65.83 kg

DRUGS (6)
  1. VITAMIN D [Concomitant]
     Indication: VITAMIN SUPPLEMENTATION
  2. CHOLESTYRAMINE [Concomitant]
     Indication: DIARRHOEA
  3. HUMIRA [Suspect]
     Indication: CROHN'S DISEASE
     Route: 058
     Dates: end: 20120306
  4. ASACOL [Concomitant]
     Indication: CROHN'S DISEASE
     Route: 048
  5. POTASSIUM [Concomitant]
     Indication: MINERAL SUPPLEMENTATION
  6. CALCIUM CARBONATE [Concomitant]
     Indication: MINERAL SUPPLEMENTATION

REACTIONS (5)
  - LOSS OF CONSCIOUSNESS [None]
  - AMNESIA [None]
  - HEPATIC ENZYME INCREASED [None]
  - GRAND MAL CONVULSION [None]
  - FATIGUE [None]
